FAERS Safety Report 11239946 (Version 3)
Quarter: 2015Q3

REPORT INFORMATION
  Report Type: Spontaneous
  Country: DE (occurrence: DE)
  Receive Date: 20150706
  Receipt Date: 20150924
  Transmission Date: 20151125
  Serious: Yes (Hospitalization)
  Sender: FDA-Public Use
  Company Number: DE-TEVA-575013GER

PATIENT
  Age: 45 Year
  Sex: Female

DRUGS (3)
  1. M?NCHSPFEFFER [Concomitant]
  2. NEUROPLANT [Concomitant]
     Dosage: 600 MILLIGRAM DAILY;
  3. COPAXONE [Suspect]
     Active Substance: GLATIRAMER ACETATE
     Indication: RELAPSING-REMITTING MULTIPLE SCLEROSIS
     Route: 058
     Dates: start: 20150622, end: 20150629

REACTIONS (7)
  - Pyrexia [Recovered/Resolved]
  - Cough [Recovered/Resolved]
  - C-reactive protein increased [Recovering/Resolving]
  - Reaction to drug excipients [Unknown]
  - Chills [Recovered/Resolved]
  - Thirst [Recovered/Resolved]
  - Blood test abnormal [Recovered/Resolved]

NARRATIVE: CASE EVENT DATE: 2015
